FAERS Safety Report 24409187 (Version 1)
Quarter: 2024Q4

REPORT INFORMATION
  Report Type: Spontaneous
  Country: GB (occurrence: GB)
  Receive Date: 20241008
  Receipt Date: 20241008
  Transmission Date: 20250114
  Serious: Yes (Other)
  Sender: NOVO NORDISK
  Company Number: GB-MHRA-EMIS-159657-20426ccc-2140-4acd-a766-0a4e74f03479

PATIENT
  Age: 69 Year
  Sex: Male
  Weight: 112 kg

DRUGS (1)
  1. RYBELSUS [Suspect]
     Active Substance: SEMAGLUTIDE
     Indication: Type 2 diabetes mellitus
     Dosage: 1DF QD (TAKE ONE DAILY THIS REPLACESTRULICITY INJECTION)
     Dates: start: 20240808, end: 20240912

REACTIONS (3)
  - Gastrointestinal disorder [Recovered/Resolved]
  - Flatulence [Unknown]
  - Abdominal distension [Unknown]

NARRATIVE: CASE EVENT DATE: 20240822
